FAERS Safety Report 24530648 (Version 1)
Quarter: 2024Q4

REPORT INFORMATION
  Report Type: Spontaneous
  Country: CN (occurrence: CN)
  Receive Date: 20241021
  Receipt Date: 20241021
  Transmission Date: 20250115
  Serious: Yes (Hospitalization)
  Sender: PURDUE
  Company Number: CN-NAPPMUNDI-GBR-2024-0120505

PATIENT
  Age: 83 Year
  Sex: Female
  Weight: 50 kg

DRUGS (2)
  1. OXYCODONE HYDROCHLORIDE [Suspect]
     Active Substance: OXYCODONE HYDROCHLORIDE
     Indication: Sedation
     Dosage: 30 MILLIGRAM, BID
     Route: 048
     Dates: start: 20240924, end: 20240930
  2. OXYCODONE HYDROCHLORIDE [Suspect]
     Active Substance: OXYCODONE HYDROCHLORIDE
     Indication: Cancer pain
     Dosage: 10 MILLIGRAM, BID
     Route: 048

REACTIONS (2)
  - Miosis [Recovering/Resolving]
  - Respiratory rate decreased [Recovering/Resolving]

NARRATIVE: CASE EVENT DATE: 20240930
